FAERS Safety Report 17590085 (Version 1)
Quarter: 2020Q1

REPORT INFORMATION
  Report Type: Report from Study
  Country: ES (occurrence: ES)
  Receive Date: 20200327
  Receipt Date: 20200327
  Transmission Date: 20200409
  Serious: Yes (Hospitalization)
  Sender: FDA-Public Use
  Company Number: ES-ACCORD-177308

PATIENT
  Age: 95 Year
  Sex: Female

DRUGS (5)
  1. FERPLEX [Concomitant]
     Dosage: 40 MG 20 DRINKABLE VIALS OF 15 ML
  2. PARACETAMOL [Concomitant]
     Active Substance: ACETAMINOPHEN
     Dosage: 1.000 MG TABLET
  3. OMEPRAZOLE. [Concomitant]
     Active Substance: OMEPRAZOLE
     Dosage: 20 MG 28 CAPSULES
  4. FUROSEMIDE. [Suspect]
     Active Substance: FUROSEMIDE
     Indication: HYPERTENSION
     Dosage: STRENGTH: 40 MG 1-1-0
     Route: 048
     Dates: start: 2019
  5. ADIRO [Concomitant]
     Active Substance: ASPIRIN
     Dosage: 100 MG GASTRO-RESISTANT TABLETS EFG, 30 TABLETS (POLYPROPYLENEALUMINUM)

REACTIONS (1)
  - Acute kidney injury [Recovered/Resolved]

NARRATIVE: CASE EVENT DATE: 2019
